FAERS Safety Report 4551019-1 (Version None)
Quarter: 2005Q1

REPORT INFORMATION
  Report Type: 
  Country: None (occurrence: None)
  Receive Date: 20050113
  Receipt Date: 20031201
  Transmission Date: 20050727
  Serious: No
  Sender: FDA-Public Use
  Company Number: US-BRISTOL-MYERS SQUIBB COMPANY-12447983

PATIENT
  Age: 47 Year
  Sex: Female
  Weight: 67 kg

DRUGS (13)
  1. TRAZODONE HCL [Suspect]
     Indication: INSOMNIA
     Dosage: TAKEN AT NIGHT
     Route: 048
  2. KLONOPIN [Concomitant]
  3. LEXAPRO [Concomitant]
  4. LIPITOR [Concomitant]
  5. XANAX [Concomitant]
  6. SOMA [Concomitant]
  7. SPIRONOLACTONE [Concomitant]
  8. SINGULAIR [Concomitant]
  9. SYNTHROID [Concomitant]
  10. ORTHO TRI-CYCLEN [Concomitant]
  11. MULTI-VITAMIN [Concomitant]
  12. CAL-MAG [Concomitant]
  13. ADVAIR DISKUS 100/50 [Concomitant]

REACTIONS (1)
  - SEXUAL DYSFUNCTION [None]
